FAERS Safety Report 8020371-7 (Version None)
Quarter: 2012Q1

REPORT INFORMATION
  Report Type: 
  Country: None (occurrence: None)
  Receive Date: 20120103
  Receipt Date: 20111222
  Transmission Date: 20120608
  Serious: Yes (Hospitalization, Other)
  Sender: FDA-Public Use
  Company Number: US-ELI_LILLY_AND_COMPANY-US201111003317

PATIENT
  Sex: Female

DRUGS (17)
  1. IRON [Concomitant]
  2. ANALGESICS [Concomitant]
     Indication: PAIN
  3. PERCOCET [Concomitant]
     Indication: PAIN
     Dosage: UNK, PRN
  4. PRILOSEC [Concomitant]
  5. CALCIUM ACETATE [Concomitant]
  6. FORTEO [Suspect]
     Dosage: 20 UG, QD
  7. HYZAAR [Concomitant]
  8. LANTUS [Concomitant]
  9. ASPIRIN [Concomitant]
  10. PREDNISONE TAB [Concomitant]
  11. MORPHINE [Concomitant]
  12. VITAMIN C [Concomitant]
  13. FORTEO [Suspect]
     Indication: OSTEOPOROSIS
     Dosage: 20 UG, QD
     Dates: start: 20110818
  14. ZOCOR [Concomitant]
  15. MULTI-VITAMIN [Concomitant]
  16. OXYCONTIN [Concomitant]
     Indication: PAIN
     Dosage: UNK, PRN
  17. JANUVIA [Concomitant]

REACTIONS (5)
  - BACK DISORDER [None]
  - BREAST PAIN [None]
  - DIZZINESS [None]
  - NAUSEA [None]
  - FEELING ABNORMAL [None]
